FAERS Safety Report 8574809 (Version 2)
Quarter: 2014Q1

REPORT INFORMATION
  Report Type: Spontaneous
  Country: US (occurrence: None)
  Receive Date: 20120323
  Receipt Date: 20130305
  Transmission Date: 20141002
  Serious: Yes (Disabling, Other)
  Sender: FDA-Public Use
  Company Number: 163-21880-11112792

PATIENT
  Age: 70 Year
  Sex: Male

DRUGS (1)
  1. REVLIMID [Suspect]
     Indication: PLASMA CELL MYELOMA
     Dosage: 25 MG, BEDTIME FOR 21 DAYS PER MONTH, PO
     Route: 048
     Dates: start: 20111011, end: 201112

REACTIONS (2)
  - Rash generalised [None]
  - Plasma cell myeloma [None]
